FAERS Safety Report 7357024-4 (Version None)
Quarter: 2011Q1

REPORT INFORMATION
  Report Type: 
  Country: None (occurrence: None)
  Receive Date: 20110307
  Receipt Date: 20100426
  Transmission Date: 20110831
  Serious: No
  Sender: FDA-Public Use
  Company Number: AEUSA201000135

PATIENT
  Age: 68 Year
  Sex: Male
  Weight: 74.1631 kg

DRUGS (1)
  1. PROLASTIN-C [Suspect]
     Indication: ALPHA-1 ANTI-TRYPSIN DEFICIENCY
     Dosage: 4250 MG, QW, IV
     Route: 042
     Dates: start: 20100422, end: 20100422

REACTIONS (2)
  - RASH MACULAR [None]
  - RASH GENERALISED [None]
